FAERS Safety Report 21983595 (Version 1)
Quarter: 2023Q1

REPORT INFORMATION
  Report Type: Other
  Country: CA (occurrence: None)
  Receive Date: 20230213
  Receipt Date: 20230213
  Transmission Date: 20230418
  Serious: Yes (Other)
  Sender: FDA-Public Use
  Company Number: CA-ROCHE-3253781

PATIENT
  Age: 35 Year
  Sex: Female

DRUGS (3)
  1. RITUXIMAB [Suspect]
     Active Substance: RITUXIMAB
     Indication: Myasthenia gravis
     Route: 042
  2. RITUXIMAB [Suspect]
     Active Substance: RITUXIMAB
     Route: 042
  3. PREDNISONE [Suspect]
     Active Substance: PREDNISONE
     Indication: Myasthenia gravis
     Route: 065

REACTIONS (8)
  - Bacteraemia [Unknown]
  - Oral herpes [Unknown]
  - Respiratory tract infection [Unknown]
  - Pharyngitis [Unknown]
  - Treatment failure [Unknown]
  - Carpal tunnel syndrome [Unknown]
  - Premature menopause [Unknown]
  - Dyspnoea exertional [Unknown]
